FAERS Safety Report 5723164-6 (Version None)
Quarter: 2008Q2

REPORT INFORMATION
  Report Type: 
  Country: None (occurrence: None)
  Receive Date: 20080430
  Receipt Date: 20080421
  Transmission Date: 20081010
  Serious: Yes (Hospitalization, Other)
  Sender: FDA-Public Use
  Company Number: FR-ELI_LILLY_AND_COMPANY-FR200712001742

PATIENT
  Age: 76 Year
  Sex: Female

DRUGS (11)
  1. FORTEO [Suspect]
     Indication: OSTEOPOROSIS
     Dosage: 20 UG, DAILY (1/D)
     Route: 058
     Dates: start: 20061116, end: 20071107
  2. FORTEO [Suspect]
     Dosage: 20 UG, DAILY (1/D)
     Route: 058
     Dates: start: 20071122, end: 20071209
  3. TRINITRINE [Concomitant]
     Indication: ANGINA PECTORIS
     Dosage: UNK, UNK
  4. HYDREA [Concomitant]
     Indication: POLYCYTHAEMIA VERA
     Dosage: 3 D/F, DAILY (1/D)
     Dates: end: 20071101
  5. HYDREA [Concomitant]
     Dosage: 3 D/F, DAILY (1/D)
     Dates: start: 20071201
  6. SINTROM [Concomitant]
     Indication: PHLEBITIS
  7. PURINETHOL [Concomitant]
     Indication: POLYCYTHAEMIA VERA
     Dosage: 1 D/F, DAILY (1/D)
     Route: 048
     Dates: start: 20071201
  8. PURINETHOL [Concomitant]
     Dosage: 1 D/F, QOD
     Route: 048
     Dates: start: 20080101
  9. IKOREL [Concomitant]
  10. DETENSIEL [Concomitant]
  11. VASTAREL [Concomitant]

REACTIONS (13)
  - ANAEMIA [None]
  - CYSTITIS [None]
  - DIVERTICULITIS [None]
  - DYSPNOEA [None]
  - FATIGUE [None]
  - INTESTINAL OBSTRUCTION [None]
  - PLATELET COUNT INCREASED [None]
  - PULMONARY EMBOLISM [None]
  - PULMONARY HYPERTENSION [None]
  - RESPIRATORY DISORDER [None]
  - SUFFOCATION FEELING [None]
  - THROMBOPHLEBITIS [None]
  - TRACHEAL DIVERTICULUM [None]
